FAERS Safety Report 15124858 (Version 3)
Quarter: 2018Q4

REPORT INFORMATION
  Report Type: Spontaneous
  Country: FR (occurrence: FR)
  Receive Date: 20180710
  Receipt Date: 20181109
  Transmission Date: 20190204
  Serious: Yes (Hospitalization)
  Sender: FDA-Public Use
  Company Number: FR-ELI_LILLY_AND_COMPANY-FR201806013996

PATIENT
  Age: 78 Year
  Sex: Female

DRUGS (15)
  1. TALTZ [Suspect]
     Active Substance: IXEKIZUMAB
     Dosage: 80 MG, OTHER, EVERY FOUR WEEKS
     Route: 058
     Dates: end: 201805
  2. TALTZ [Suspect]
     Active Substance: IXEKIZUMAB
     Indication: PSORIASIS
     Dosage: 160 MG, UNKNOWN
     Route: 058
     Dates: start: 20180327
  3. TALTZ [Suspect]
     Active Substance: IXEKIZUMAB
     Dosage: 80 MG, OTHER, EVERY TWO WEEKS
     Route: 058
  4. LERCANIDIPINE [Concomitant]
     Active Substance: LERCANIDIPINE
     Indication: PRODUCT USED FOR UNKNOWN INDICATION
     Dosage: 20 MG, EACH EVENING
     Route: 065
  5. PRAVASTATINE                       /00880401/ [Concomitant]
     Active Substance: PRAVASTATIN
     Indication: DYSLIPIDAEMIA
     Dosage: 20 MG, EACH EVENING
     Route: 048
  6. PANTOPRAZOLE [Concomitant]
     Active Substance: PANTOPRAZOLE
     Indication: PRODUCT USED FOR UNKNOWN INDICATION
     Dosage: 40 MG, EACH EVENING
     Route: 048
  7. ZOPICLONE [Concomitant]
     Active Substance: ZOPICLONE
     Indication: INSOMNIA
     Dosage: 7.5 MG, EACH EVENING
     Route: 048
  8. BISOPROLOL TEVA [Concomitant]
     Active Substance: BISOPROLOL
     Indication: PRODUCT USED FOR UNKNOWN INDICATION
     Dosage: 05 MG, DAILY
     Route: 048
  9. UVEDOSE [Concomitant]
     Active Substance: CHOLECALCIFEROL
     Indication: VITAMIN D DEFICIENCY
     Dosage: 1 DF, OTHER, EVERY THREE MONTHS
     Route: 048
  10. BIPRETERAX                         /01421201/ [Concomitant]
     Active Substance: INDAPAMIDE\PERINDOPRIL ERBUMINE
     Indication: HYPERTENSION
     Dosage: 1 DF, EACH MORNING
     Route: 048
  11. FLUOXETINE [Concomitant]
     Active Substance: FLUOXETINE HYDROCHLORIDE
     Indication: DEPRESSION
     Dosage: 40 MG, EACH MORNING
     Route: 048
  12. VOGALENE [Concomitant]
     Active Substance: METOPIMAZINE
     Indication: NAUSEA
     Dosage: 7.5 MG, DAILY
     Route: 048
     Dates: start: 20180507, end: 20180509
  13. AMOXICILLINE                       /00249601/ [Concomitant]
     Active Substance: AMOXICILLIN
     Indication: URINARY TRACT INFECTION
     Dosage: 1 G, DAILY
     Route: 048
     Dates: start: 20180507, end: 20180509
  14. SPASFON                            /00765801/ [Concomitant]
     Active Substance: PHLOROGLUCINOL\1,3,5-TRIMETHOXYBENZENE
     Indication: PRODUCT USED FOR UNKNOWN INDICATION
     Dosage: UNK, UNKNOWN
     Route: 065
     Dates: start: 20180507
  15. SMECTA [Concomitant]
     Active Substance: MONTMORILLONITE
     Indication: DIARRHOEA
     Dosage: UNK, UNKNOWN
     Dates: start: 20180507, end: 20180509

REACTIONS (4)
  - Nephrotic syndrome [Recovered/Resolved]
  - Escherichia urinary tract infection [Recovered/Resolved]
  - Hyponatraemia [Recovered/Resolved]
  - Hypokalaemia [Recovered/Resolved]

NARRATIVE: CASE EVENT DATE: 20180507
